FAERS Safety Report 6854932-5 (Version None)
Quarter: 2010Q3

REPORT INFORMATION
  Report Type: 
  Country: None (occurrence: None)
  Receive Date: 20100717
  Receipt Date: 20080304
  Transmission Date: 20110219
  Serious: No
  Sender: FDA-Public Use
  Company Number: US-PFIZER INC-2007097860

PATIENT
  Sex: Female

DRUGS (1)
  1. CHANTIX [Suspect]
     Indication: TOBACCO ABUSE

REACTIONS (4)
  - ARTHRALGIA [None]
  - JOINT EFFUSION [None]
  - JOINT SWELLING [None]
  - OEDEMA [None]
